FAERS Safety Report 6760874-6 (Version None)
Quarter: 2010Q2

REPORT INFORMATION
  Report Type: 
  Country: None (occurrence: None)
  Receive Date: 20100608
  Receipt Date: 20100527
  Transmission Date: 20101027
  Serious: Yes (Other)
  Sender: FDA-Public Use
  Company Number: PHHY2010US34999

PATIENT
  Sex: Female

DRUGS (4)
  1. ZOMETA [Suspect]
  2. LISINOPRIL [Concomitant]
  3. FENTANYL [Concomitant]
     Route: 062
  4. VITAMINS [Concomitant]

REACTIONS (4)
  - BLOOD BLISTER [None]
  - OSTEONECROSIS OF JAW [None]
  - PAIN [None]
  - TOOTH EXTRACTION [None]
